FAERS Safety Report 9827132 (Version 1)
Quarter: 2014Q1

REPORT INFORMATION
  Report Type: Spontaneous
  Country: US (occurrence: US)
  Receive Date: 20140117
  Receipt Date: 20140117
  Transmission Date: 20141002
  Serious: No
  Sender: FDA-Public Use
  Company Number: US-GLAXOSMITHKLINE-A1039575A

PATIENT
  Age: 47 Year
  Sex: Male

DRUGS (3)
  1. PROMACTA [Suspect]
     Indication: PRODUCT USED FOR UNKNOWN INDICATION
     Dosage: 25MG PER DAY
  2. PEGASYS [Concomitant]
  3. RIBAPAK [Concomitant]

REACTIONS (1)
  - Treatment noncompliance [Unknown]
